FAERS Safety Report 12524376 (Version 3)
Quarter: 2016Q3

REPORT INFORMATION
  Report Type: Report from Study
  Country: AU (occurrence: AU)
  Receive Date: 20160704
  Receipt Date: 20160912
  Transmission Date: 20161109
  Serious: Yes (Hospitalization, Other)
  Sender: FDA-Public Use
  Company Number: PHHY2015AU125155

PATIENT
  Age: 53 Year
  Sex: Male

DRUGS (8)
  1. NEXIUM [Concomitant]
     Active Substance: ESOMEPRAZOLE MAGNESIUM
     Indication: PRODUCT USED FOR UNKNOWN INDICATION
     Dosage: 20 MG, QD
     Route: 048
     Dates: start: 20150613
  2. SERTRALINE [Concomitant]
     Active Substance: SERTRALINE HYDROCHLORIDE
     Indication: AFFECTIVE DISORDER
     Dosage: 0.5 MG, QD
     Route: 048
     Dates: start: 20130821
  3. WARFARIN [Concomitant]
     Active Substance: WARFARIN
     Indication: PULMONARY EMBOLISM
     Dosage: UNK
     Route: 065
  4. DITROPAN [Concomitant]
     Active Substance: OXYBUTYNIN CHLORIDE
     Indication: PRODUCT USED FOR UNKNOWN INDICATION
     Dosage: 5 MG, QID
     Route: 048
  5. GILENYA [Suspect]
     Active Substance: FINGOLIMOD HYDROCHLORIDE
     Indication: MULTIPLE SCLEROSIS
     Dosage: 0.5 MG, QD
     Route: 048
     Dates: start: 20111122
  6. PREGABALIN. [Concomitant]
     Active Substance: PREGABALIN
     Indication: PRODUCT USED FOR UNKNOWN INDICATION
     Dosage: 0.5 MG, QD
     Route: 048
     Dates: start: 20130821
  7. VITAMIN D [Concomitant]
     Active Substance: CHOLECALCIFEROL
     Indication: MULTIPLE SCLEROSIS
     Dosage: 50000 IU, THREE WEEKLY
     Route: 048
     Dates: start: 20150613
  8. SERETIDE [Concomitant]
     Active Substance: FLUTICASONE PROPIONATE\SALMETEROL XINAFOATE
     Indication: PRODUCT USED FOR UNKNOWN INDICATION
     Dosage: 2 DF, BID (2 PUFFS BD)
     Route: 055

REACTIONS (40)
  - Catheter site haemorrhage [Recovering/Resolving]
  - Vomiting [Recovered/Resolved]
  - Blood creatine phosphokinase increased [Recovered/Resolved]
  - Nephrolithiasis [Unknown]
  - Muscular weakness [Unknown]
  - Muscle swelling [Unknown]
  - Haemoglobin decreased [Unknown]
  - Device occlusion [Recovering/Resolving]
  - Oropharyngeal pain [Recovered/Resolved]
  - Urinary retention [Recovered/Resolved]
  - Abdominal distension [Recovering/Resolving]
  - Heart rate increased [Unknown]
  - Urosepsis [Recovered/Resolved]
  - Haematuria [Recovered/Resolved]
  - Rhabdomyolysis [Recovered/Resolved]
  - Rhinorrhoea [Recovered/Resolved]
  - Dry mouth [Recovering/Resolving]
  - Urinary retention [Recovered/Resolved]
  - Chromaturia [Unknown]
  - Multiple sclerosis relapse [Recovering/Resolving]
  - Urinary tract infection [Recovered/Resolved]
  - Pyrexia [Recovered/Resolved]
  - Neurogenic bladder [Recovered/Resolved]
  - Fall [Recovered/Resolved]
  - Faecaloma [Recovered/Resolved]
  - Decubitus ulcer [Not Recovered/Not Resolved]
  - Urinary tract infection [Recovering/Resolving]
  - Pyrexia [Recovered/Resolved]
  - Syncope [Recovered/Resolved]
  - Suprapubic pain [Recovering/Resolving]
  - Hypophagia [Recovering/Resolving]
  - Urinary tract infection bacterial [Recovered/Resolved]
  - Renal cyst [Unknown]
  - Asthenia [Unknown]
  - Fatigue [Unknown]
  - Balance disorder [Unknown]
  - Abdominal pain [Recovered/Resolved]
  - General physical health deterioration [Recovered/Resolved]
  - Concomitant disease aggravated [Recovered/Resolved]
  - Vomiting [Recovering/Resolving]

NARRATIVE: CASE EVENT DATE: 20150805
